FAERS Safety Report 24252383 (Version 1)
Quarter: 2024Q3

REPORT INFORMATION
  Report Type: Other
  Country: FR (occurrence: FR)
  Receive Date: 20240827
  Receipt Date: 20240827
  Transmission Date: 20241017
  Serious: Yes (Other)
  Sender: ZYDUS PHARM
  Company Number: None

PATIENT

DRUGS (8)
  1. TRAMADOL [Suspect]
     Active Substance: TRAMADOL\TRAMADOL HYDROCHLORIDE
     Indication: Back pain
     Dosage: 100 MG
     Route: 048
     Dates: start: 2013, end: 201909
  2. TRAMADOL [Suspect]
     Active Substance: TRAMADOL\TRAMADOL HYDROCHLORIDE
     Dosage: 150 MILLIGRAM, QD
     Route: 048
     Dates: start: 2019, end: 2019
  3. TRAMADOL [Suspect]
     Active Substance: TRAMADOL\TRAMADOL HYDROCHLORIDE
     Dosage: UNK
     Route: 048
  4. AMOXICILLIN [Suspect]
     Active Substance: AMOXICILLIN
     Indication: Oropharyngeal pain
     Dosage: UNK
     Route: 065
  5. AMOXICILLIN [Suspect]
     Active Substance: AMOXICILLIN
     Indication: Cough
     Dosage: UNK
     Route: 048
  6. ESOMEPRAZOLE SODIUM [Concomitant]
     Active Substance: ESOMEPRAZOLE SODIUM
     Indication: Product used for unknown indication
     Dosage: 20 MG
     Route: 065
     Dates: start: 201909, end: 201909
  7. TRANXENE [Concomitant]
     Active Substance: CLORAZEPATE DIPOTASSIUM
     Indication: Product used for unknown indication
     Dosage: 5 MILLIGRAM, QD
     Route: 048
     Dates: start: 201909
  8. CIPROFIBRATE [Concomitant]
     Active Substance: CIPROFIBRATE
     Indication: Product used for unknown indication
     Dosage: UNK
     Route: 048
     Dates: start: 201909, end: 201909

REACTIONS (35)
  - Bone pain [Unknown]
  - Cough [Not Recovered/Not Resolved]
  - Ear swelling [Unknown]
  - Eye irritation [Unknown]
  - Feeling of body temperature change [Unknown]
  - Laryngeal pain [Unknown]
  - Lymphadenopathy [Unknown]
  - Lymphadenopathy [Not Recovered/Not Resolved]
  - Mucosal pain [Recovering/Resolving]
  - Oedema mucosal [Unknown]
  - Oral discomfort [Unknown]
  - Oropharyngeal pain [Recovering/Resolving]
  - Pain [Unknown]
  - Parosmia [Not Recovered/Not Resolved]
  - Parosmia [Not Recovered/Not Resolved]
  - Peripheral swelling [Unknown]
  - Skin burning sensation [Unknown]
  - Taste disorder [Recovering/Resolving]
  - Back pain [Unknown]
  - Throat irritation [Unknown]
  - Tongue eruption [Recovering/Resolving]
  - Urine abnormality [Unknown]
  - Ear discomfort [Unknown]
  - Fatigue [Unknown]
  - Dizziness [Unknown]
  - Dyspnoea [Not Recovered/Not Resolved]
  - Myalgia [Unknown]
  - Dyspepsia [Unknown]
  - Paraesthesia [Not Recovered/Not Resolved]
  - Pruritus [Unknown]
  - Swollen tongue [Recovering/Resolving]
  - Tinnitus [Recovered/Resolved]
  - Tinnitus [Not Recovered/Not Resolved]
  - Vomiting [Unknown]
  - Walking disability [Not Recovered/Not Resolved]

NARRATIVE: CASE EVENT DATE: 20190901
